FAERS Safety Report 24731902 (Version 1)
Quarter: 2024Q4

REPORT INFORMATION
  Report Type: Spontaneous
  Country: US (occurrence: None)
  Receive Date: 20241213
  Receipt Date: 20241213
  Transmission Date: 20250114
  Serious: Yes (Disabling, Other)
  Sender: Public
  Company Number: None

PATIENT
  Age: 31 Year
  Sex: Female
  Weight: 51.75 kg

DRUGS (1)
  1. PYRIDOSTIGMINE [Suspect]
     Active Substance: PYRIDOSTIGMINE
     Indication: Autoimmune disorder
     Dosage: OTHER QUANTITY : 100 TABLET(S);?FREQUENCY : 4 TIMES A DAY;?
     Route: 048
     Dates: start: 20210820

REACTIONS (6)
  - Product dispensing error [None]
  - Product dispensing error [None]
  - Drug ineffective [None]
  - Product use complaint [None]
  - Product storage error [None]
  - Product physical issue [None]

NARRATIVE: CASE EVENT DATE: 20241108
